FAERS Safety Report 7746408-8 (Version None)
Quarter: 2011Q3

REPORT INFORMATION
  Report Type: 
  Country: None (occurrence: None)
  Receive Date: 20110913
  Receipt Date: 20110913
  Transmission Date: 20111222
  Serious: Yes (Hospitalization)
  Sender: FDA-Public Use
  Company Number: None

PATIENT
  Age: 89 Year
  Sex: Male
  Weight: 90.718 kg

DRUGS (1)
  1. LUPRON [Suspect]
     Indication: PROSTATE CANCER
     Dates: start: 20110312, end: 20110713

REACTIONS (7)
  - WHEELCHAIR USER [None]
  - SYNCOPE [None]
  - FALL [None]
  - CONFUSIONAL STATE [None]
  - ABASIA [None]
  - HALLUCINATION [None]
  - SPEECH DISORDER [None]
